FAERS Safety Report 20984170 (Version 1)
Quarter: 2022Q2

REPORT INFORMATION
  Report Type: Spontaneous
  Country: TW (occurrence: TW)
  Receive Date: 20220621
  Receipt Date: 20220621
  Transmission Date: 20220721
  Serious: No
  Sender: FDA-Public Use
  Company Number: TW-CSTONE PHARMACEUTICALS (SUZHOU) CO., LTD.-2022TW00660

PATIENT
  Age: 62 Year
  Sex: Female

DRUGS (1)
  1. AYVAKIT [Suspect]
     Active Substance: AVAPRITINIB
     Indication: Product used for unknown indication
     Route: 065
     Dates: start: 20220506

REACTIONS (5)
  - Headache [Unknown]
  - Hypersensitivity [Recovered/Resolved]
  - Abdominal pain upper [Unknown]
  - Initial insomnia [Unknown]
  - Diarrhoea [Recovering/Resolving]
